FAERS Safety Report 5805765-X (Version None)
Quarter: 2008Q3

REPORT INFORMATION
  Report Type: 
  Country: None (occurrence: None)
  Receive Date: 20080708
  Receipt Date: 20080708
  Transmission Date: 20090109
  Serious: Yes (Hospitalization)
  Sender: FDA-Public Use
  Company Number: None

PATIENT
  Sex: Female
  Weight: 71.6 kg

DRUGS (4)
  1. CISPLATIN [Suspect]
     Dosage: 92 MG
  2. DOXORUBICIN HYDROCHLORIDE [Suspect]
     Dosage: 82 MG
  3. TAXOL [Suspect]
     Dosage: 290 MG
  4. NEULASTA [Suspect]
     Dosage: 6 MG

REACTIONS (10)
  - ASTHENIA [None]
  - CHAPPED LIPS [None]
  - DRUG TOXICITY [None]
  - EASTERN COOPERATIVE ONCOLOGY GROUP PERFORMANCE STATUS WORSENED [None]
  - FATIGUE [None]
  - MALAISE [None]
  - NAUSEA [None]
  - PALLOR [None]
  - VOMITING [None]
  - WEIGHT DECREASED [None]
